FAERS Safety Report 7932938-2 (Version None)
Quarter: 2011Q4

REPORT INFORMATION
  Report Type: 
  Country: None (occurrence: None)
  Receive Date: 20111122
  Receipt Date: 20111119
  Transmission Date: 20120403
  Serious: No
  Sender: FDA-Public Use
  Company Number: US-PFIZER INC-2011283401

PATIENT
  Sex: Male

DRUGS (1)
  1. TOVIAZ [Suspect]
     Indication: MICTURITION URGENCY
     Dosage: UNK

REACTIONS (3)
  - CONSTIPATION [None]
  - DRY MOUTH [None]
  - MICTURITION URGENCY [None]
